FAERS Safety Report 23458906 (Version 1)
Quarter: 2024Q1

REPORT INFORMATION
  Report Type: Spontaneous
  Country: US (occurrence: US)
  Receive Date: 20240131
  Receipt Date: 20240131
  Transmission Date: 20240409
  Serious: Yes (Hospitalization)
  Sender: FDA-Public Use
  Company Number: US-NAARI PTE LIMITED-2023NP000051

PATIENT
  Sex: Female

DRUGS (4)
  1. NORETHINDRONE [Suspect]
     Active Substance: NORETHINDRONE
     Indication: Endometriosis
     Dosage: DAILY
     Route: 048
  2. NORETHINDRONE [Suspect]
     Active Substance: NORETHINDRONE
     Indication: Prophylaxis
  3. NORETHINDRONE [Suspect]
     Active Substance: NORETHINDRONE
     Indication: Bone disorder
  4. LEUPROLIDE [Suspect]
     Active Substance: LEUPROLIDE
     Indication: Endometriosis
     Dosage: 3.75 MILLIGRAM, ONCE A MONTH, INTRAMUSCULAR
     Route: 065

REACTIONS (1)
  - Drug ineffective [Unknown]
